FAERS Safety Report 8654716 (Version 2)
Quarter: 2013Q3

REPORT INFORMATION
  Report Type: Spontaneous
  Country: US (occurrence: US)
  Receive Date: 20120709
  Receipt Date: 20130716
  Transmission Date: 20140515
  Serious: Yes (Hospitalization, Other)
  Sender: FDA-Public Use
  Company Number: US-PFIZER INC-2012161328

PATIENT
  Age: 58 Year
  Sex: Female

DRUGS (5)
  1. CHANTIX [Suspect]
     Indication: SMOKING CESSATION THERAPY
     Dosage: STARTER PACK
     Route: 048
     Dates: start: 20070507
  2. CHANTIX [Suspect]
     Dosage: CONTINUING FIRST MONTH PACK
     Route: 048
     Dates: start: 20070606
  3. CHANTIX [Suspect]
     Dosage: CONTINUING MONTHLY PACKS
     Route: 048
     Dates: start: 20070807
  4. PROZAC [Concomitant]
     Dosage: UNK
     Dates: start: 20090803
  5. XANAX [Concomitant]
     Dosage: 0.5 MG, 1X/DAY, AT BED TIME

REACTIONS (2)
  - Intentional overdose [Unknown]
  - Suicide attempt [Unknown]
